FAERS Safety Report 9880651 (Version 1)
Quarter: 2014Q1

REPORT INFORMATION
  Report Type: Spontaneous
  Country: US (occurrence: None)
  Receive Date: 20140206
  Receipt Date: 20140206
  Transmission Date: 20141002
  Serious: Yes (Other)
  Sender: FDA-Public Use
  Company Number: None

PATIENT
  Age: 60 Year
  Sex: Male
  Weight: 86.64 kg

DRUGS (4)
  1. DULOXETINE [Suspect]
     Route: 048
     Dates: start: 20131226, end: 20140114
  2. DULOXETINE [Suspect]
     Route: 048
     Dates: start: 20131226, end: 20140114
  3. DULOXETINE [Suspect]
     Route: 048
     Dates: start: 20131226, end: 20140114
  4. DULOXETINE [Suspect]
     Route: 048
     Dates: start: 20131226, end: 20140114

REACTIONS (6)
  - Neuropathy peripheral [None]
  - Myalgia [None]
  - Back pain [None]
  - Anxiety [None]
  - Panic attack [None]
  - Depressed mood [None]
